FAERS Safety Report 5482613-1 (Version None)
Quarter: 2007Q4

REPORT INFORMATION
  Report Type: 
  Country: None (occurrence: None)
  Receive Date: 20071011
  Receipt Date: 20070817
  Transmission Date: 20080405
  Serious: No
  Sender: FDA-Public Use
  Company Number: A0671273A

PATIENT
  Age: 36 Year
  Sex: Female

DRUGS (4)
  1. TYKERB [Suspect]
     Dosage: 1000MG PER DAY
     Route: 048
     Dates: start: 20070301
  2. CAPECITABINE [Concomitant]
  3. ALTERNATIVE THERAPY [Concomitant]
  4. XELODA [Concomitant]

REACTIONS (2)
  - DISEASE PROGRESSION [None]
  - SOMNOLENCE [None]
